FAERS Safety Report 23937684 (Version 1)
Quarter: 2024Q2

REPORT INFORMATION
  Report Type: Spontaneous
  Country: US (occurrence: US)
  Receive Date: 20240604
  Receipt Date: 20240604
  Transmission Date: 20240715
  Serious: No
  Sender: FDA-Public Use
  Company Number: US-AZURITY PHARMACEUTICALS, INC.-US-2024AZR000342

PATIENT
  Sex: Female

DRUGS (1)
  1. TESTOSTERONE CYPIONATE [Suspect]
     Active Substance: TESTOSTERONE CYPIONATE
     Indication: Product used for unknown indication
     Dosage: UNK (ADMINISTERED A TOTAL OF 2 ML OUT OF THE VIAL SO FAR)
     Route: 065
     Dates: start: 2024

REACTIONS (2)
  - Poor quality product administered [Unknown]
  - Product deposit [Unknown]

NARRATIVE: CASE EVENT DATE: 20240101
